FAERS Safety Report 21055893 (Version 1)
Quarter: 2022Q3

REPORT INFORMATION
  Report Type: Report from Study
  Country: US (occurrence: US)
  Receive Date: 20220708
  Receipt Date: 20220708
  Transmission Date: 20221027
  Serious: Yes (Other)
  Sender: FDA-Public Use
  Company Number: US-JNJFOC-20220700615

PATIENT
  Age: 6 Decade
  Sex: Female

DRUGS (16)
  1. STELARA [Suspect]
     Active Substance: USTEKINUMAB
     Indication: Psoriatic arthropathy
     Route: 058
     Dates: start: 20211111
  2. STELARA [Suspect]
     Active Substance: USTEKINUMAB
     Route: 058
  3. ADVIL [Concomitant]
     Active Substance: IBUPROFEN
  4. CALCIUM\CHOLECALCIFEROL [Concomitant]
     Active Substance: CALCIUM\CHOLECALCIFEROL
  5. CORTIZONE 10 [Concomitant]
     Active Substance: HYDROCORTISONE
  6. ERGOCALCIFEROL [Concomitant]
     Active Substance: ERGOCALCIFEROL
  7. DICLOFENAC [Concomitant]
     Active Substance: DICLOFENAC
     Dosage: 1%
  8. METFORMIN [Concomitant]
     Active Substance: METFORMIN HYDROCHLORIDE
  9. PRILOSEC [Concomitant]
     Active Substance: OMEPRAZOLE MAGNESIUM
  10. PULMICORT TURBUHALER [Concomitant]
     Active Substance: BUDESONIDE
  11. SINGULAIR [Concomitant]
     Active Substance: MONTELUKAST SODIUM
  12. SYNTHROID [Concomitant]
     Active Substance: LEVOTHYROXINE SODIUM
  13. VENLAFAXINE [Concomitant]
     Active Substance: VENLAFAXINE HYDROCHLORIDE
  14. XOPENEX [Concomitant]
     Active Substance: LEVALBUTEROL HYDROCHLORIDE
  15. COVID-19 VACCINE [Concomitant]
     Indication: COVID-19 prophylaxis
  16. BENADRYL [Concomitant]
     Active Substance: DIPHENHYDRAMINE HYDROCHLORIDE

REACTIONS (4)
  - Hysterectomy [Unknown]
  - Foot fracture [Not Recovered/Not Resolved]
  - Onychomadesis [Not Recovered/Not Resolved]
  - Psoriasis [Not Recovered/Not Resolved]
